FAERS Safety Report 7491960-3 (Version None)
Quarter: 2011Q2

REPORT INFORMATION
  Report Type: 
  Country: None (occurrence: None)
  Receive Date: 20110518
  Receipt Date: 20110518
  Transmission Date: 20111010
  Serious: Yes (Other)
  Sender: FDA-Public Use
  Company Number: None

PATIENT
  Age: 59 Year
  Sex: Male

DRUGS (1)
  1. GKUOUZUDE 5 MG TEVA [Suspect]
     Indication: DIABETES MELLITUS
     Dosage: 5 MG 2 AM 1 PM PO
     Route: 048
     Dates: start: 20100908, end: 20101007

REACTIONS (2)
  - BLOOD GLUCOSE INCREASED [None]
  - PRODUCT SUBSTITUTION ISSUE [None]
